FAERS Safety Report 6634817-X (Version None)
Quarter: 2010Q1

REPORT INFORMATION
  Report Type: 
  Country: None (occurrence: None)
  Receive Date: 20100315
  Receipt Date: 20100305
  Transmission Date: 20100710
  Serious: Yes (Hospitalization)
  Sender: FDA-Public Use
  Company Number: FR-PFIZER INC-2010028428

PATIENT
  Age: 90 Year
  Sex: Male

DRUGS (13)
  1. TAHOR [Suspect]
     Indication: MYOCARDIAL INFARCTION
     Dosage: 40 MG, 1X/DAY
     Route: 048
     Dates: start: 20100115, end: 20100125
  2. MOPRAL [Suspect]
     Indication: PROPHYLAXIS AGAINST GASTROINTESTINAL ULCER
     Dosage: 20 MG, 1X/DAY
     Route: 048
     Dates: start: 20100115, end: 20100125
  3. PLAVIX [Suspect]
     Indication: MYOCARDIAL INFARCTION
     Dosage: 75 MG, 1X/DAY
     Route: 048
     Dates: start: 20100115, end: 20100124
  4. LASILIX [Concomitant]
     Dosage: 40 MG, 3X/DAY
     Route: 048
     Dates: start: 20100115, end: 20100125
  5. LASILIX [Concomitant]
     Dosage: 40 MG, 1X/DAY
     Route: 048
     Dates: start: 20100126
  6. KARDEGIC [Concomitant]
     Dosage: 160 MG, 1X/DAY
  7. KARDEGIC [Concomitant]
     Dosage: 75 MG, 1X/DAY
     Dates: start: 20100115
  8. TEMESTA [Concomitant]
     Dosage: 2.5 MG, 1X/DAY
  9. AVLOCARDYL [Concomitant]
     Dosage: 40 MG, UNK
     Dates: end: 20100115
  10. NEXIUM [Concomitant]
     Dosage: 20 MG, UNK
     Dates: end: 20100115
  11. LOXEN [Concomitant]
     Dosage: 50 MG, UNK
     Dates: end: 20100115
  12. TENORMIN [Concomitant]
     Dosage: 50 MG, 1X/DAY
  13. TRIATEC [Concomitant]
     Dosage: 2.5 MG, 1X/DAY

REACTIONS (2)
  - CHOLESTASIS [None]
  - CYTOLYTIC HEPATITIS [None]
